FAERS Safety Report 14054811 (Version 1)
Quarter: 2017Q4

REPORT INFORMATION
  Report Type: Spontaneous
  Country: US (occurrence: US)
  Receive Date: 20171006
  Receipt Date: 20171006
  Transmission Date: 20180321
  Serious: No
  Sender: FDA-Public Use
  Company Number: US-JNJFOC-20170714743

PATIENT
  Age: 6 Decade
  Sex: Female

DRUGS (2)
  1. WOMENS ROGAINE [Suspect]
     Active Substance: MINOXIDIL
     Route: 061
  2. WOMENS ROGAINE [Suspect]
     Active Substance: MINOXIDIL
     Indication: ALOPECIA
     Dosage: EVERYDAY
     Route: 061
     Dates: start: 2015

REACTIONS (4)
  - Product formulation issue [Unknown]
  - Accidental exposure to product [Unknown]
  - Underdose [Unknown]
  - Drug ineffective [Unknown]
